FAERS Safety Report 7295112-1 (Version None)
Quarter: 2011Q1

REPORT INFORMATION
  Report Type: 
  Country: None (occurrence: None)
  Receive Date: 20110216
  Receipt Date: 20110209
  Transmission Date: 20110831
  Serious: Yes (Other)
  Sender: FDA-Public Use
  Company Number: GB-JNJFOC-20110203187

PATIENT
  Age: 43 Year
  Sex: Female
  Weight: 88 kg

DRUGS (2)
  1. RITUXIMAB [Concomitant]
  2. INFLIXIMAB, RECOMBINANT [Suspect]
     Indication: RHEUMATOID ARTHRITIS
     Route: 042

REACTIONS (2)
  - RECTAL LESION [None]
  - GASTROINTESTINAL HAEMORRHAGE [None]
